FAERS Safety Report 18446622 (Version 1)
Quarter: 2020Q4

REPORT INFORMATION
  Report Type: Spontaneous
  Country: US (occurrence: US)
  Receive Date: 20201030
  Receipt Date: 20201030
  Transmission Date: 20210114
  Serious: No
  Sender: FDA-Public Use
  Company Number: US-NOVOPROD-712538

PATIENT
  Age: 68 Year
  Sex: Female

DRUGS (1)
  1. TRESIBA [Suspect]
     Active Substance: INSULIN DEGLUDEC
     Indication: TYPE 2 DIABETES MELLITUS
     Dosage: 10 IU, QD (10 UNITS ONCE A DAY IN HER STOMACH)
     Route: 058
     Dates: start: 20200205, end: 20200207

REACTIONS (10)
  - Headache [Not Recovered/Not Resolved]
  - Peripheral swelling [Not Recovered/Not Resolved]
  - Chest pain [Recovered/Resolved]
  - Disorientation [Recovered/Resolved]
  - Influenza [Recovered/Resolved]
  - Palpitations [Recovered/Resolved]
  - Nausea [Recovered/Resolved]
  - Dizziness [Recovered/Resolved]
  - Head discomfort [Recovering/Resolving]
  - Head discomfort [Recovered/Resolved]

NARRATIVE: CASE EVENT DATE: 20200206
